FAERS Safety Report 18810638 (Version 1)
Quarter: 2021Q1

REPORT INFORMATION
  Report Type: Spontaneous
  Country: FR (occurrence: FR)
  Receive Date: 20210129
  Receipt Date: 20210129
  Transmission Date: 20210419
  Serious: Yes (Hospitalization)
  Sender: FDA-Public Use
  Company Number: FR-LUNDBECK-DKLU3027604

PATIENT
  Age: 10 Year
  Sex: Female
  Weight: 25 kg

DRUGS (4)
  1. LACOSAMIDE. [Suspect]
     Active Substance: LACOSAMIDE
     Indication: EPILEPSY
     Route: 048
     Dates: start: 202007
  2. MICROPAKINE [Suspect]
     Active Substance: VALPROATE SODIUM
     Indication: EPILEPSY
     Route: 048
     Dates: start: 201707
  3. ZEBINIX [Suspect]
     Active Substance: ESLICARBAZEPINE ACETATE
     Indication: EPILEPSY
     Route: 048
     Dates: start: 202008
  4. CLOBAZAM. [Suspect]
     Active Substance: CLOBAZAM
     Indication: EPILEPSY
     Dosage: 15 MILLIGRAMS IN THE MORNING, 20 MILLIGRAMS IN THE EVENING
     Route: 048

REACTIONS (1)
  - Hyponatraemia [Recovered/Resolved]
